FAERS Safety Report 14273657 (Version 2)
Quarter: 2018Q4

REPORT INFORMATION
  Report Type: Spontaneous
  Country: US (occurrence: US)
  Receive Date: 20171211
  Receipt Date: 20181215
  Transmission Date: 20190204
  Serious: Yes (Other)
  Sender: FDA-Public Use
  Company Number: US-OTSUKA-2017_010595

PATIENT
  Sex: Female

DRUGS (6)
  1. ABILIFY [Suspect]
     Active Substance: ARIPIPRAZOLE
     Indication: MAJOR DEPRESSION
     Dosage: 15 MG, UNK
     Route: 048
     Dates: start: 201201, end: 201412
  2. ZOLOFT [Concomitant]
     Active Substance: SERTRALINE HYDROCHLORIDE
     Indication: DEPRESSION
     Dosage: 100 MG, QD
     Route: 048
  3. CITALOPRAM [Concomitant]
     Active Substance: CITALOPRAM HYDROBROMIDE
     Indication: PRODUCT USED FOR UNKNOWN INDICATION
     Dosage: 40 MG, QD
     Route: 048
  4. MIRTAZAPINE. [Concomitant]
     Active Substance: MIRTAZAPINE
     Indication: PRODUCT USED FOR UNKNOWN INDICATION
     Dosage: 30 MG, QD
     Route: 048
  5. ABILIFY [Suspect]
     Active Substance: ARIPIPRAZOLE
     Indication: BIPOLAR DISORDER
     Dosage: 20 MG, UNK
     Route: 048
     Dates: start: 201201, end: 201412
  6. ABILIFY [Suspect]
     Active Substance: ARIPIPRAZOLE
     Indication: ANXIETY

REACTIONS (15)
  - Hallucinations, mixed [Unknown]
  - Gambling disorder [Recovered/Resolved]
  - Partner stress [Unknown]
  - Compulsive shopping [Unknown]
  - Insomnia [Unknown]
  - Suicide attempt [Unknown]
  - Injury [Unknown]
  - Obsessive-compulsive disorder [Recovered/Resolved]
  - Condition aggravated [Recovered/Resolved]
  - Suicidal ideation [Unknown]
  - Neuropsychiatric symptoms [Unknown]
  - Bankruptcy [Unknown]
  - Emotional distress [Unknown]
  - Economic problem [Unknown]
  - Loss of employment [Unknown]

NARRATIVE: CASE EVENT DATE: 2012
